FAERS Safety Report 18467018 (Version 1)
Quarter: 2020Q4

REPORT INFORMATION
  Report Type: Spontaneous
  Country: US (occurrence: US)
  Receive Date: 20201105
  Receipt Date: 20201105
  Transmission Date: 20210114
  Serious: Yes (Other)
  Sender: FDA-Public Use
  Company Number: US-SUN PHARMACEUTICAL INDUSTRIES LTD-2020R1-266394

PATIENT
  Age: 14 Year
  Sex: Female
  Weight: 76 kg

DRUGS (1)
  1. VERAPAMIL [Suspect]
     Active Substance: VERAPAMIL HYDROCHLORIDE
     Indication: PRODUCT USED FOR UNKNOWN INDICATION
     Dosage: 240 MILLIGRAM, 12 TABLETS
     Route: 065

REACTIONS (5)
  - Intentional overdose [Unknown]
  - Tachycardia [Unknown]
  - Hypotension [Unknown]
  - Sinus bradycardia [Unknown]
  - Atrioventricular block second degree [Unknown]
